FAERS Safety Report 25810732 (Version 2)
Quarter: 2025Q4

REPORT INFORMATION
  Report Type: Spontaneous
  Country: CA (occurrence: CA)
  Receive Date: 20250917
  Receipt Date: 20251112
  Transmission Date: 20260118
  Serious: Yes (Other)
  Sender: CELLTRION
  Company Number: CA-PFIZER INC-202500178169

PATIENT

DRUGS (8)
  1. INFLECTRA [Suspect]
     Active Substance: INFLIXIMAB-DYYB
     Indication: Psoriatic arthropathy
     Dosage: 300 MG, EVERY 8 WEEKS
     Route: 042
     Dates: start: 20170913, end: 20180828
  2. INFLECTRA [Suspect]
     Active Substance: INFLIXIMAB-DYYB
     Dosage: 5 MG/KG, EVERY 6 WEEKS
     Route: 042
     Dates: start: 20201007, end: 20220330
  3. INFLECTRA [Suspect]
     Active Substance: INFLIXIMAB-DYYB
     Dosage: 3 MG/KG, EVERY 8 WEEKS
     Route: 042
     Dates: start: 20221230, end: 2023
  4. INFLECTRA [Suspect]
     Active Substance: INFLIXIMAB-DYYB
     Dosage: 200 MG, EVERY 8 WEEKS
     Route: 042
     Dates: start: 2023
  5. INFLECTRA [Suspect]
     Active Substance: INFLIXIMAB-DYYB
     Dosage: 200 MG, EVERY 8 WEEKS
     Route: 042
     Dates: start: 20250522
  6. FLOVENT [Concomitant]
     Active Substance: FLUTICASONE PROPIONATE
     Dosage: UNK
  7. ISONIAZID [Concomitant]
     Active Substance: ISONIAZID
     Dosage: 300 MG, 1X/DAY
     Route: 065
     Dates: start: 20170801
  8. VITAMIN B6 [Concomitant]
     Active Substance: PYRIDOXINE HYDROCHLORIDE
     Dosage: UNK

REACTIONS (1)
  - Dementia [Not Recovered/Not Resolved]
